FAERS Safety Report 13029999 (Version 1)
Quarter: 2016Q4

REPORT INFORMATION
  Report Type: Spontaneous
  Country: US (occurrence: US)
  Receive Date: 20161214
  Receipt Date: 20161214
  Transmission Date: 20170207
  Serious: Yes (Life-Threatening)
  Sender: FDA-Public Use
  Company Number: None

PATIENT
  Age: 74 Year
  Sex: Male
  Weight: 67.7 kg

DRUGS (1)
  1. PACLITAXEL. [Suspect]
     Active Substance: PACLITAXEL
     Indication: NON-SMALL CELL LUNG CANCER
     Route: 042
     Dates: start: 20161212

REACTIONS (3)
  - Unresponsive to stimuli [None]
  - Pulse absent [None]
  - Infusion related reaction [None]

NARRATIVE: CASE EVENT DATE: 20161212
